FAERS Safety Report 20818750 (Version 2)
Quarter: 2022Q2

REPORT INFORMATION
  Report Type: Spontaneous
  Country: BR (occurrence: BR)
  Receive Date: 20220512
  Receipt Date: 20220512
  Transmission Date: 20220721
  Serious: Yes (Other)
  Sender: FDA-Public Use
  Company Number: BR-BAYER-2022A067900

PATIENT
  Age: 39 Year
  Sex: Female

DRUGS (1)
  1. KYLEENA [Suspect]
     Active Substance: LEVONORGESTREL
     Indication: Contraception
     Dosage: 17.5?G/DAY
     Route: 015
     Dates: start: 20210414

REACTIONS (4)
  - Ectopic pregnancy with contraceptive device [None]
  - Intra-abdominal haemorrhage [None]
  - Drug ineffective [None]
  - Abdominal pain [None]

NARRATIVE: CASE EVENT DATE: 20220420
